FAERS Safety Report 25461329 (Version 2)
Quarter: 2025Q2

REPORT INFORMATION
  Report Type: Spontaneous
  Country: US (occurrence: None)
  Receive Date: 20250620
  Receipt Date: 20250624
  Transmission Date: 20250716
  Serious: No
  Sender: INCYTE
  Company Number: US-INCYTE CORPORATION-2025IN006430

PATIENT
  Age: 70 Year

DRUGS (5)
  1. JAKAFI [Suspect]
     Active Substance: RUXOLITINIB
     Indication: Polycythaemia vera
     Dosage: 10 MILLIGRAM, BID
  2. JAKAFI [Suspect]
     Active Substance: RUXOLITINIB
     Dosage: 5 MILLIGRAM, BID
  3. CARVEDILOL [Suspect]
     Active Substance: CARVEDILOL
     Indication: Blood pressure increased
     Route: 065
  4. CARVEDILOL [Suspect]
     Active Substance: CARVEDILOL
     Route: 065
  5. BESREMI [Concomitant]
     Active Substance: ROPEGINTERFERON ALFA-2B-NJFT
     Indication: Product used for unknown indication
     Route: 065

REACTIONS (2)
  - Laboratory test abnormal [Unknown]
  - Blood pressure increased [Unknown]
